FAERS Safety Report 5118176-X (Version None)
Quarter: 2006Q3

REPORT INFORMATION
  Report Type: 
  Country: None (occurrence: None)
  Receive Date: 20060928
  Receipt Date: 20060928
  Transmission Date: 20061208
  Serious: Yes (Other)
  Sender: FDA-Public Use
  Company Number: None

PATIENT
  Age: 34 Year
  Sex: Female
  Weight: 81.6475 kg

DRUGS (1)
  1. EFFEXOR XR [Suspect]
     Indication: DEPRESSION
     Dosage: 37.5MG, 75 MG, 150 MG 1 PER DAY PO
     Route: 048
     Dates: start: 20060101, end: 20060601

REACTIONS (13)
  - ANGER [None]
  - ANXIETY [None]
  - CONDITION AGGRAVATED [None]
  - DEPRESSION [None]
  - FEELING ABNORMAL [None]
  - IMPULSIVE BEHAVIOUR [None]
  - MALAISE [None]
  - PAIN IN EXTREMITY [None]
  - SUICIDAL IDEATION [None]
  - THINKING ABNORMAL [None]
  - VERTIGO [None]
  - VISUAL DISTURBANCE [None]
  - WEIGHT INCREASED [None]
